FAERS Safety Report 12082807 (Version 1)
Quarter: 2016Q1

REPORT INFORMATION
  Report Type: Spontaneous
  Country: US (occurrence: None)
  Receive Date: 20160216
  Receipt Date: 20160216
  Transmission Date: 20160526
  Serious: No
  Sender: FDA-Public Use
  Company Number: None

PATIENT
  Age: 63 Year
  Sex: Female
  Weight: 44.45 kg

DRUGS (9)
  1. ASPIRIN. [Concomitant]
     Active Substance: ASPIRIN
  2. PACEMAKER [Concomitant]
  3. LORAZEPAM. [Concomitant]
     Active Substance: LORAZEPAM
  4. SOTALOL. [Concomitant]
     Active Substance: SOTALOL
  5. NITROSTAT [Concomitant]
     Active Substance: NITROGLYCERIN
  6. LEVOTHYROXINE. [Concomitant]
     Active Substance: LEVOTHYROXINE
  7. FUROSEMIDE 20 MG. MYLAN [Suspect]
     Active Substance: FUROSEMIDE
     Indication: FLUID RETENTION
     Dosage: 1-2 TABLETS DAILY TWICE DAILY TAKEN BY MOUTH
     Route: 048
     Dates: start: 20151208, end: 20160212
  8. FUROSEMIDE 20 MG. MYLAN [Suspect]
     Active Substance: FUROSEMIDE
     Indication: CARDIAC FAILURE CONGESTIVE
     Dosage: 1-2 TABLETS DAILY TWICE DAILY TAKEN BY MOUTH
     Route: 048
     Dates: start: 20151208, end: 20160212
  9. FURODEMIDE [Concomitant]

REACTIONS (3)
  - Drug ineffective [None]
  - Pleural effusion [None]
  - Product substitution issue [None]
